FAERS Safety Report 8923549 (Version 2)
Quarter: 2012Q4

REPORT INFORMATION
  Report Type: 
  Country: BR (occurrence: BR)
  Receive Date: 20121123
  Receipt Date: 20121219
  Transmission Date: 20130627
  Serious: Yes (Other)
  Sender: FDA-Public Use
  Company Number: BR-PFIZER INC-2012292140

PATIENT
  Age: 42 Year
  Sex: Female

DRUGS (2)
  1. DOSTINEX [Suspect]
     Indication: PITUITARY MICROADENOMA
     Dosage: 1 tablet of 0.5 mg, 1x/week
     Dates: start: 201210
  2. DOSTINEX [Suspect]
     Indication: BLOOD PROLACTIN INCREASED

REACTIONS (7)
  - Product quality issue [Unknown]
  - Weight increased [Unknown]
  - Oedema peripheral [Unknown]
  - Abdominal distension [Unknown]
  - Irritability [Unknown]
  - Dysgeusia [Unknown]
  - Headache [Unknown]
